FAERS Safety Report 13264044 (Version 1)
Quarter: 2017Q1

REPORT INFORMATION
  Report Type: Spontaneous
  Country: US (occurrence: US)
  Receive Date: 20170222
  Receipt Date: 20170222
  Transmission Date: 20170428
  Serious: Yes (Life-Threatening, Hospitalization, Disabling)
  Sender: FDA-Public Use
  Company Number: None

PATIENT
  Age: 49 Year
  Sex: Male
  Weight: 78 kg

DRUGS (22)
  1. PANTOPRAZOLE [Concomitant]
     Active Substance: PANTOPRAZOLE SODIUM
  2. LYRICA [Concomitant]
     Active Substance: PREGABALIN
  3. ZOFRAN [Concomitant]
     Active Substance: ONDANSETRON HYDROCHLORIDE
  4. EPOGEN [Concomitant]
     Active Substance: ERYTHROPOIETIN
  5. AMBIEN [Concomitant]
     Active Substance: ZOLPIDEM TARTRATE
  6. MS CONTIN [Concomitant]
     Active Substance: MORPHINE SULFATE
  7. PHENERGAN [Concomitant]
     Active Substance: PROMETHAZINE HYDROCHLORIDE
  8. FLORINEF ACETATE [Concomitant]
     Active Substance: FLUDROCORTISONE ACETATE
  9. RENVELA [Concomitant]
     Active Substance: SEVELAMER CARBONATE
  10. HYDROXYZINE [Concomitant]
     Active Substance: HYDROXYZINE HYDROCHLORIDE
  11. XANAX [Concomitant]
     Active Substance: ALPRAZOLAM
  12. DULCOLAX NOS [Concomitant]
     Active Substance: BISACODYL OR DOCUSATE SODIUM
  13. LEVOTHYROXINE. [Concomitant]
     Active Substance: LEVOTHYROXINE
  14. MORPHINE SR [Concomitant]
     Active Substance: MORPHINE
  15. SENSIPAR [Concomitant]
     Active Substance: CINACALCET HYDROCHLORIDE
  16. LIDOCAINE. [Concomitant]
     Active Substance: LIDOCAINE
  17. SENOKOT [Concomitant]
     Active Substance: SENNOSIDES
  18. APIXABAN [Suspect]
     Active Substance: APIXABAN
     Indication: PULMONARY EMBOLISM
     Route: 048
  19. APIXABAN [Suspect]
     Active Substance: APIXABAN
     Indication: THROMBOSIS PROPHYLAXIS
     Route: 048
  20. CALCIUM CARBONATE. [Concomitant]
     Active Substance: CALCIUM CARBONATE
  21. LEXAPRO [Concomitant]
     Active Substance: ESCITALOPRAM OXALATE
  22. MARINOL [Concomitant]
     Active Substance: DRONABINOL

REACTIONS (1)
  - Haemorrhage intracranial [None]

NARRATIVE: CASE EVENT DATE: 20161221
